FAERS Safety Report 9706460 (Version 2)
Quarter: 2013Q4

REPORT INFORMATION
  Report Type: Report from Study
  Country: AU (occurrence: AU)
  Receive Date: 20131125
  Receipt Date: 20131125
  Transmission Date: 20140711
  Serious: Yes (Other)
  Sender: FDA-Public Use
  Company Number: AU-ROCHE-1176223

PATIENT
  Age: 69 Year
  Sex: Male

DRUGS (2)
  1. ACTEMRA [Suspect]
     Indication: RHEUMATOID ARTHRITIS
     Dosage: 800 MG/40 ML
     Route: 042
     Dates: start: 20121023
  2. METHOTREXATE [Concomitant]

REACTIONS (3)
  - Chest pain [Unknown]
  - Hypertension [Unknown]
  - Hypertension [Unknown]
